FAERS Safety Report 10945471 (Version 1)
Quarter: 2015Q1

REPORT INFORMATION
  Report Type: Spontaneous
  Country: US (occurrence: None)
  Receive Date: 20150318
  Receipt Date: 20150318
  Transmission Date: 20150721
  Serious: Yes (Other)
  Sender: FDA-Public Use
  Company Number: ADR-2015-00464

PATIENT
  Age: 34 Year
  Sex: Male

DRUGS (2)
  1. LIORESAL [Suspect]
     Active Substance: BACLOFEN
     Indication: HEAD INJURY
  2. LIORESAL [Suspect]
     Active Substance: BACLOFEN
     Indication: BRAIN INJURY

REACTIONS (10)
  - Tremor [None]
  - Gram stain positive [None]
  - Implant site swelling [None]
  - Muscle spasticity [None]
  - Implant site extravasation [None]
  - Condition aggravated [None]
  - Implant site infection [None]
  - No therapeutic response [None]
  - Muscle twitching [None]
  - White blood cell count increased [None]

NARRATIVE: CASE EVENT DATE: 20140601
